FAERS Safety Report 5020050-4 (Version None)
Quarter: 2006Q2

REPORT INFORMATION
  Report Type: 
  Country: None (occurrence: None)
  Receive Date: 20060607
  Receipt Date: 20060530
  Transmission Date: 20061013
  Serious: Yes (Other)
  Sender: FDA-Public Use
  Company Number: US-UCBSA-8017135

PATIENT
  Sex: Female

DRUGS (5)
  1. FLONASE [Suspect]
     Route: 045
     Dates: start: 20020101
  2. ZYRTEC [Suspect]
     Dates: start: 20020101
  3. PREMPRO [Concomitant]
  4. ZANTAC [Concomitant]
  5. CLONAZEPAM [Concomitant]

REACTIONS (13)
  - BRONCHITIS [None]
  - DRUG DEPENDENCE [None]
  - DRUG INEFFECTIVE [None]
  - DYSPNOEA [None]
  - EYE SWELLING [None]
  - FEELING ABNORMAL [None]
  - HYPERSENSITIVITY [None]
  - ILL-DEFINED DISORDER [None]
  - IMMUNE SYSTEM DISORDER [None]
  - INFLUENZA [None]
  - NASAL OEDEMA [None]
  - NASOPHARYNGITIS [None]
  - PRURITUS [None]
